FAERS Safety Report 13750453 (Version 1)
Quarter: 2017Q3

REPORT INFORMATION
  Report Type: Spontaneous
  Country: US (occurrence: US)
  Receive Date: 20170713
  Receipt Date: 20170713
  Transmission Date: 20171127
  Serious: No
  Sender: FDA-Public Use
  Company Number: US-ASTELLAS-2016US032761

PATIENT
  Age: 74 Year
  Sex: Male

DRUGS (4)
  1. MYRBETRIQ [Suspect]
     Active Substance: MIRABEGRON
     Indication: HYPERTONIC BLADDER
     Dosage: 25 MG, ONCE DAILY ABOUT 6 MONTHS
     Route: 048
  2. MYRBETRIQ [Suspect]
     Active Substance: MIRABEGRON
     Indication: BLADDER CANCER
  3. BCG [Concomitant]
     Active Substance: BCG VACCINE
     Indication: BLADDER CANCER
     Dosage: UNK UNK, UNKNOWN FREQ.
     Route: 065
  4. VALSTAR                            /01480101/ [Concomitant]
     Indication: BLADDER CANCER
     Dosage: UNK UNK, ONCE WEEKLY
     Route: 065

REACTIONS (1)
  - Bladder spasm [Unknown]

NARRATIVE: CASE EVENT DATE: 201607
